FAERS Safety Report 6294665-X (Version None)
Quarter: 2009Q3

REPORT INFORMATION
  Report Type: 
  Country: None (occurrence: None)
  Receive Date: 20090803
  Receipt Date: 20090727
  Transmission Date: 20100115
  Serious: Yes (Hospitalization, Congenital Anomaly)
  Sender: FDA-Public Use
  Company Number: A0680978A

PATIENT
  Sex: Female

DRUGS (8)
  1. PAXIL [Suspect]
     Indication: DEPRESSION
     Dates: start: 20030101, end: 20050101
  2. PAROXETINE [Suspect]
     Indication: DEPRESSION
     Dates: start: 20030101, end: 20050101
  3. NIFEDIPINE [Concomitant]
  4. BETAMETHASONE [Concomitant]
  5. MAGNESIUM SULFATE [Concomitant]
  6. INSULIN [Concomitant]
  7. PROCARDIA [Concomitant]
  8. STEROID [Concomitant]

REACTIONS (8)
  - ATRIAL SEPTAL DEFECT [None]
  - CARDIAC MURMUR [None]
  - DRUG EXPOSURE DURING PREGNANCY [None]
  - MYOPIA [None]
  - PATENT DUCTUS ARTERIOSUS [None]
  - PLAGIOCEPHALY [None]
  - PREMATURE BABY [None]
  - PULMONARY VALVE STENOSIS [None]
